FAERS Safety Report 4836127-X (Version None)
Quarter: 2005Q4

REPORT INFORMATION
  Report Type: 
  Country: None (occurrence: None)
  Receive Date: 20051118
  Receipt Date: 20051108
  Transmission Date: 20060501
  Serious: Yes (Disabling)
  Sender: FDA-Public Use
  Company Number: 2005EU002201

PATIENT
  Age: 12 Year
  Sex: Male
  Weight: 34 kg

DRUGS (10)
  1. TACROLIMUS CAPSULE (TACROLIMUS) CAPSULE [Suspect]
     Indication: RENAL TRANSPLANT
     Dosage: SEE IMAGE
     Route: 048
     Dates: start: 20050727, end: 20050816
  2. TACROLIMUS CAPSULE (TACROLIMUS) CAPSULE [Suspect]
     Indication: RENAL TRANSPLANT
     Dosage: SEE IMAGE
     Route: 048
     Dates: start: 20050816, end: 20050902
  3. TACROLIMUS CAPSULE (TACROLIMUS) CAPSULE [Suspect]
     Indication: RENAL TRANSPLANT
     Dosage: SEE IMAGE
     Route: 048
     Dates: start: 20050902, end: 20050920
  4. TACROLIMUS CAPSULE (TACROLIMUS) CAPSULE [Suspect]
     Indication: RENAL TRANSPLANT
     Dosage: SEE IMAGE
     Route: 048
     Dates: start: 20050920
  5. PREDNISONE [Suspect]
     Indication: RENAL TRANSPLANT
     Dosage: 10.00 MG, UID/QD, ORAL
     Route: 048
     Dates: start: 20050427
  6. MYFORTIC [Concomitant]
  7. BACTRIM [Concomitant]
  8. RANITIDINE HYDROCHLORIDE [Concomitant]
  9. FUNGIZONE [Concomitant]
  10. EUCALCIC (CALCIUM CARBONATE) [Concomitant]

REACTIONS (4)
  - BONE PAIN [None]
  - NEPHROPATHY TOXIC [None]
  - TENDONITIS [None]
  - WHEELCHAIR USER [None]
